FAERS Safety Report 23510436 (Version 2)
Quarter: 2024Q1

REPORT INFORMATION
  Report Type: Other
  Country: JP (occurrence: JP)
  Receive Date: 20240211
  Receipt Date: 20240328
  Transmission Date: 20240410
  Serious: Yes (Other)
  Sender: FDA-Public Use
  Company Number: JP-CHUGAI-2024002978

PATIENT
  Age: 57 Year
  Sex: Female
  Weight: 69.5 kg

DRUGS (20)
  1. HERCEPTIN [Suspect]
     Active Substance: TRASTUZUMAB
     Indication: HER2 positive salivary gland cancer
     Route: 065
     Dates: start: 20230419, end: 20230419
  2. HERCEPTIN [Suspect]
     Active Substance: TRASTUZUMAB
     Route: 065
     Dates: start: 20230517, end: 20230517
  3. HERCEPTIN [Suspect]
     Active Substance: TRASTUZUMAB
     Route: 065
     Dates: start: 20230607, end: 20230607
  4. HERCEPTIN [Suspect]
     Active Substance: TRASTUZUMAB
     Route: 065
     Dates: start: 20230628, end: 20230628
  5. HERCEPTIN [Suspect]
     Active Substance: TRASTUZUMAB
     Route: 065
     Dates: start: 20230719, end: 20230719
  6. HERCEPTIN [Suspect]
     Active Substance: TRASTUZUMAB
     Route: 065
     Dates: start: 20230809, end: 20230809
  7. HERCEPTIN [Suspect]
     Active Substance: TRASTUZUMAB
     Route: 065
     Dates: start: 20230830, end: 20230830
  8. HERCEPTIN [Suspect]
     Active Substance: TRASTUZUMAB
     Route: 065
     Dates: start: 20230920, end: 20230920
  9. HERCEPTIN [Suspect]
     Active Substance: TRASTUZUMAB
     Route: 065
     Dates: start: 20231011, end: 20231011
  10. HERCEPTIN [Suspect]
     Active Substance: TRASTUZUMAB
     Route: 065
     Dates: start: 20231101, end: 20231101
  11. DOCETAXEL [Suspect]
     Active Substance: DOCETAXEL\DOCETAXEL ANHYDROUS
     Indication: HER2 positive salivary gland cancer
     Dosage: 70 MILLIGRAM/SQ. METER, QD
     Route: 065
     Dates: start: 20230419, end: 20230419
  12. DOCETAXEL [Suspect]
     Active Substance: DOCETAXEL\DOCETAXEL ANHYDROUS
     Dosage: 70 MILLIGRAM/SQ. METER, QD
     Route: 065
     Dates: start: 20230517, end: 20230517
  13. DOCETAXEL [Suspect]
     Active Substance: DOCETAXEL\DOCETAXEL ANHYDROUS
     Dosage: 70 MILLIGRAM/SQ. METER, QD
     Route: 065
     Dates: start: 20230607, end: 20230607
  14. DOCETAXEL [Suspect]
     Active Substance: DOCETAXEL\DOCETAXEL ANHYDROUS
     Dosage: 70 MILLIGRAM/SQ. METER, QD
     Route: 065
     Dates: start: 20230628, end: 20230628
  15. DOCETAXEL [Suspect]
     Active Substance: DOCETAXEL\DOCETAXEL ANHYDROUS
     Dosage: 70 MILLIGRAM/SQ. METER, QD
     Route: 065
     Dates: start: 20230719, end: 20230719
  16. DOCETAXEL [Suspect]
     Active Substance: DOCETAXEL\DOCETAXEL ANHYDROUS
     Dosage: 70 MILLIGRAM/SQ. METER, QD
     Route: 065
     Dates: start: 20230809, end: 20230809
  17. DOCETAXEL [Suspect]
     Active Substance: DOCETAXEL\DOCETAXEL ANHYDROUS
     Dosage: 70 MILLIGRAM/SQ. METER, QD
     Route: 065
     Dates: start: 20230830, end: 20230830
  18. DOCETAXEL [Suspect]
     Active Substance: DOCETAXEL\DOCETAXEL ANHYDROUS
     Dosage: 70 MILLIGRAM/SQ. METER, QD
     Route: 065
     Dates: start: 20230920, end: 20230920
  19. DOCETAXEL [Suspect]
     Active Substance: DOCETAXEL\DOCETAXEL ANHYDROUS
     Dosage: 70 MILLIGRAM/SQ. METER, QD
     Route: 065
     Dates: start: 20231011, end: 20231011
  20. DOCETAXEL [Suspect]
     Active Substance: DOCETAXEL\DOCETAXEL ANHYDROUS
     Dosage: 70 MILLIGRAM/SQ. METER, QD
     Route: 065
     Dates: start: 20231101, end: 20231101

REACTIONS (4)
  - Neutrophil count decreased [Recovered/Resolved]
  - White blood cell count decreased [Recovered/Resolved]
  - Dry skin [Recovered/Resolved]
  - Anaemia [Recovered/Resolved]

NARRATIVE: CASE EVENT DATE: 20230425
